FAERS Safety Report 9250877 (Version 1)
Quarter: 2013Q2

REPORT INFORMATION
  Report Type: Spontaneous
  Country: US (occurrence: US)
  Receive Date: 20130424
  Receipt Date: 20130424
  Transmission Date: 20140414
  Serious: Yes (Other)
  Sender: FDA-Public Use
  Company Number: PHEH2013US008847

PATIENT
  Sex: 0

DRUGS (4)
  1. CLOZARIL [Suspect]
     Dosage: 500 MG, UNK
  2. CLOZARIL [Suspect]
     Dosage: 450 MG, UNK
  3. RESTORIL [Suspect]
     Dosage: 37.5 MG, UNK
  4. BENZTROPINE MESYLATE [Suspect]
     Dosage: 2.5 MG, UNK

REACTIONS (7)
  - Cardiomegaly [Unknown]
  - Paralysis [Unknown]
  - Convulsion [Unknown]
  - Grimacing [Unknown]
  - Abnormal behaviour [Unknown]
  - Muscle contracture [Unknown]
  - Dyspnoea [Unknown]
